FAERS Safety Report 8789169 (Version 1)
Quarter: 2012Q4

REPORT INFORMATION
  Report Type: Spontaneous
  Country: US (occurrence: None)
  Receive Date: 20120910
  Receipt Date: 20120910
  Transmission Date: 20130627
  Serious: No
  Sender: FDA-Public Use
  Company Number: None

PATIENT
  Age: 64 Year
  Sex: Male

DRUGS (1)
  1. TIMOLOL [Suspect]
     Indication: GLAUCOMA
     Dosage: one drop both eyes once daily 046
     Route: 047
     Dates: start: 20120224, end: 20120327

REACTIONS (7)
  - Somnolence [None]
  - Ocular hyperaemia [None]
  - Erythema [None]
  - Dermatitis [None]
  - Eye pruritus [None]
  - Lacrimation increased [None]
  - Eye discharge [None]
